FAERS Safety Report 4497052-X (Version None)
Quarter: 2004Q4

REPORT INFORMATION
  Report Type: 
  Country: None (occurrence: None)
  Receive Date: 20041108
  Receipt Date: 20040913
  Transmission Date: 20050328
  Serious: Yes (Hospitalization, Other)
  Sender: FDA-Public Use
  Company Number: USA040875404

PATIENT
  Age: 51 Year
  Sex: Female

DRUGS (2)
  1. PROZAC [Suspect]
     Indication: DEPRESSION
     Dosage: 80 MG DAY
     Dates: start: 19840101
  2. FLUOXETINE [Concomitant]

REACTIONS (3)
  - CORONARY ARTERY SURGERY [None]
  - DRUG INEFFECTIVE [None]
  - MYOCARDIAL INFARCTION [None]
